FAERS Safety Report 8588217-6 (Version None)
Quarter: 2012Q3

REPORT INFORMATION
  Report Type: 
  Country: None (occurrence: None)
  Receive Date: 20120813
  Receipt Date: 20120807
  Transmission Date: 20120928
  Serious: Yes (Other)
  Sender: FDA-Public Use
  Company Number: US-BAYER-2012-080924

PATIENT
  Age: 37 Year
  Sex: Female

DRUGS (5)
  1. TOPAMAX [Concomitant]
     Dosage: 100 MG, UNK
  2. AMITRIPTYLINE HCL [Concomitant]
     Dosage: 150 MG, UNK
  3. ZANAFLEX [Concomitant]
     Dosage: 2 MG, UNK
  4. BETASERON [Suspect]
     Dosage: 0.3 MG, QOD
     Route: 058
  5. XANAX [Concomitant]
     Dosage: 0.25 MG, UNK

REACTIONS (1)
  - URINARY TRACT INFECTION [None]
